FAERS Safety Report 18216529 (Version 1)
Quarter: 2020Q3

REPORT INFORMATION
  Report Type: Spontaneous
  Country: CN (occurrence: CN)
  Receive Date: 20200901
  Receipt Date: 20200901
  Transmission Date: 20201103
  Serious: Yes (Hospitalization)
  Sender: FDA-Public Use
  Company Number: CN-ROCHE-2668675

PATIENT
  Age: 49 Year
  Sex: Female
  Weight: 45 kg

DRUGS (2)
  1. VINORELBINE TARTRATE. [Suspect]
     Active Substance: VINORELBINE TARTRATE
     Indication: CERVIX CARCINOMA STAGE 0
     Route: 041
     Dates: start: 20200624, end: 20200701
  2. HERCEPTIN [Suspect]
     Active Substance: TRASTUZUMAB
     Indication: CERVIX CARCINOMA STAGE 0
     Route: 041
     Dates: start: 20200624, end: 20200624

REACTIONS (3)
  - Myelosuppression [Recovering/Resolving]
  - Intentional product use issue [Unknown]
  - Off label use [Unknown]

NARRATIVE: CASE EVENT DATE: 20200706
